FAERS Safety Report 21023495 (Version 1)
Quarter: 2022Q2

REPORT INFORMATION
  Report Type: Spontaneous
  Country: RO (occurrence: RO)
  Receive Date: 20220629
  Receipt Date: 20220629
  Transmission Date: 20220721
  Serious: Yes (Life-Threatening, Hospitalization)
  Sender: FDA-Public Use
  Company Number: RO-BoehringerIngelheim-2022-BI-178232

PATIENT
  Age: 56 Year
  Sex: Female

DRUGS (4)
  1. TIOTROPIUM [Suspect]
     Active Substance: TIOTROPIUM
     Indication: Product used for unknown indication
     Route: 055
  2. FLUTICASONE [Concomitant]
     Active Substance: FLUTICASONE
     Indication: Antibiotic therapy
  3. ALBUTEROL [Concomitant]
     Active Substance: ALBUTEROL
     Indication: Antibiotic therapy
  4. OMALIZUMAB [Concomitant]
     Active Substance: OMALIZUMAB
     Indication: Product used for unknown indication

REACTIONS (1)
  - Condition aggravated [Recovered/Resolved]
